FAERS Safety Report 7964867-2 (Version None)
Quarter: 2011Q4

REPORT INFORMATION
  Report Type: 
  Country: None (occurrence: None)
  Receive Date: 20111208
  Receipt Date: 20111208
  Transmission Date: 20120403
  Serious: Yes (Death)
  Sender: FDA-Public Use
  Company Number: None

PATIENT
  Age: 76 Year
  Sex: Male
  Weight: 91.8 kg

DRUGS (13)
  1. ASPIRIN [Concomitant]
     Route: 048
  2. NASONEX PRN [Concomitant]
  3. ALBUTEROL [Concomitant]
  4. LASIX [Concomitant]
     Route: 048
  5. DUONEB [Concomitant]
  6. LANTUS [Concomitant]
     Route: 058
  7. AMARYL [Concomitant]
     Route: 048
  8. CARDIZEM [Concomitant]
     Route: 048
  9. SPIRIVA [Concomitant]
  10. PRADAXA [Suspect]
     Indication: ATRIAL FIBRILLATION
     Dosage: 75 MG
     Route: 048
     Dates: start: 20111119, end: 20111204
  11. MAGNESIUM OXIDE [Concomitant]
     Route: 048
  12. ZITHROMAX [Concomitant]
     Route: 048
  13. PREDNISONE TAPER [Concomitant]
     Route: 048

REACTIONS (6)
  - HAEMOPTYSIS [None]
  - PULMONARY HAEMORRHAGE [None]
  - HAEMATEMESIS [None]
  - HYPOTENSION [None]
  - PULSELESS ELECTRICAL ACTIVITY [None]
  - DYSPNOEA [None]
